FAERS Safety Report 10420901 (Version 1)
Quarter: 2014Q3

REPORT INFORMATION
  Report Type: Spontaneous
  Country: US (occurrence: None)
  Receive Date: 20140829
  Receipt Date: 20140829
  Transmission Date: 20150326
  Serious: Yes (Hospitalization)
  Sender: FDA-Public Use
  Company Number: None

PATIENT
  Age: 28 Year
  Sex: Female
  Weight: 75.07 kg

DRUGS (1)
  1. CISPLATIN. [Suspect]
     Active Substance: CISPLATIN

REACTIONS (7)
  - Malaise [None]
  - Haematocrit decreased [None]
  - Pyrexia [None]
  - Chills [None]
  - Oral candidiasis [None]
  - Haemoglobin decreased [None]
  - Neutropenia [None]

NARRATIVE: CASE EVENT DATE: 20140427
